FAERS Safety Report 23799237 (Version 1)
Quarter: 2024Q2

REPORT INFORMATION
  Report Type: Spontaneous
  Country: US (occurrence: US)
  Receive Date: 20240430
  Receipt Date: 20240430
  Transmission Date: 20240716
  Serious: No
  Sender: FDA-Public Use
  Company Number: US-PFIZER INC-202400096733

PATIENT
  Age: 58 Year
  Sex: Female

DRUGS (1)
  1. INLYTA [Suspect]
     Active Substance: AXITINIB
     Dosage: 1 MG TABLET - 3 TABLETS EVERY 12 HOURS BY MOUTH
     Route: 048
     Dates: start: 20230729

REACTIONS (2)
  - Stomatitis [Unknown]
  - Weight decreased [Unknown]
